FAERS Safety Report 8282493-5 (Version None)
Quarter: 2012Q2

REPORT INFORMATION
  Report Type: 
  Country: None (occurrence: None)
  Receive Date: 20120413
  Receipt Date: 20120403
  Transmission Date: 20120825
  Serious: Yes (Hospitalization, Disabling)
  Sender: FDA-Public Use
  Company Number: US-SANOFI-AVENTIS-2011SA074118

PATIENT
  Age: 60 Year
  Sex: Female
  Weight: 150 kg

DRUGS (1)
  1. LANTUS [Suspect]
     Dosage: 40 UNITS IN THE MORNING AND 50 UNITS IN THE EVENING
     Route: 058
     Dates: start: 20000603

REACTIONS (2)
  - ANKLE FRACTURE [None]
  - MEDICATION ERROR [None]
